FAERS Safety Report 9019797 (Version 1)
Quarter: 2013Q1

REPORT INFORMATION
  Report Type: Spontaneous
  Country: US (occurrence: US)
  Receive Date: 20130118
  Receipt Date: 20130118
  Transmission Date: 20140127
  Serious: No
  Sender: FDA-Public Use
  Company Number: US-009507513-1301USA008420

PATIENT
  Age: 54 Year
  Sex: Female

DRUGS (1)
  1. CORICIDIN HBP FLU [Suspect]
     Indication: NASOPHARYNGITIS
     Dosage: UNK, UNKNOWN
     Route: 048

REACTIONS (1)
  - Headache [Not Recovered/Not Resolved]
